FAERS Safety Report 24427221 (Version 1)
Quarter: 2024Q4

REPORT INFORMATION
  Report Type: Report from Study
  Country: GB (occurrence: GB)
  Receive Date: 20241011
  Receipt Date: 20241011
  Transmission Date: 20250115
  Serious: Yes (Death, Other)
  Sender: JOHNSON AND JOHNSON
  Company Number: None

PATIENT
  Age: 51 Year
  Sex: Male

DRUGS (3)
  1. PREZISTA [Suspect]
     Active Substance: DARUNAVIR ETHANOLATE
     Indication: Adverse drug reaction
     Dosage: 800MG ONCE A DAY
     Route: 048
  2. RITONAVIR [Suspect]
     Active Substance: RITONAVIR
     Indication: Adverse drug reaction
     Dosage: 100MG ONCE A DAY
     Route: 065
     Dates: start: 2024, end: 2024
  3. EMTRICITABINE\TENOFOVIR [Suspect]
     Active Substance: EMTRICITABINE\TENOFOVIR
     Indication: Adverse drug reaction
     Dosage: 200/245MG ONCE A DAY
     Route: 048

REACTIONS (2)
  - Status epilepticus [Fatal]
  - Epilepsy [Unknown]

NARRATIVE: CASE EVENT DATE: 20241008
